FAERS Safety Report 4704679-6 (Version None)
Quarter: 2005Q2

REPORT INFORMATION
  Report Type: 
  Country: None (occurrence: None)
  Receive Date: 20050629
  Receipt Date: 20050616
  Transmission Date: 20051028
  Serious: Yes (Other)
  Sender: FDA-Public Use
  Company Number: CIP05001034

PATIENT
  Age: 89 Year
  Sex: Female

DRUGS (10)
  1. ACTONEL [Suspect]
     Indication: OSTEOPOROSIS
     Dosage: 35 MG, 1/WEEK, ORAL
     Route: 048
     Dates: start: 20050404, end: 20050426
  2. ASTRIX (ACETYLSALICYLIC ACID) [Concomitant]
  3. VITRACAL (CALCIUM CITRATE) [Concomitant]
  4. LANOXIN [Concomitant]
  5. LIPITOR [Concomitant]
  6. MAREVAN ^BRITISHI DRUG HOUSES^ (WARFARIN SODIUM) [Concomitant]
  7. OSTELIN (ERGOCALCIFEROL) [Concomitant]
  8. ACETAMINOPHEN [Concomitant]
  9. TEMAZEPAM [Concomitant]
  10. COVERSYL PLUS (INDAPAMIDE, PERINDOPRIL ERBUMINE) [Concomitant]

REACTIONS (1)
  - HEPATITIS [None]
